FAERS Safety Report 8131314 (Version 3)
Quarter: 2013Q3

REPORT INFORMATION
  Report Type: Spontaneous
  Country: US (occurrence: US)
  Receive Date: 20110912
  Receipt Date: 20130918
  Transmission Date: 20140515
  Serious: Yes (Death, Hospitalization, Disabling)
  Sender: FDA-Public Use
  Company Number: US-GLAXOSMITHKLINE-A0879751A

PATIENT
  Age: 66 Year
  Sex: Male

DRUGS (6)
  1. AVANDIA [Suspect]
     Indication: DIABETES MELLITUS
     Dosage: 8MG PER DAY
     Route: 048
     Dates: start: 200312, end: 2007
  2. GLUCOPHAGE [Concomitant]
  3. JANUVIA [Concomitant]
  4. METFORMIN [Concomitant]
  5. VYTORIN [Concomitant]
  6. ADDERALL [Concomitant]

REACTIONS (2)
  - Myocardial infarction [Fatal]
  - Cardiogenic shock [Unknown]
